FAERS Safety Report 16964437 (Version 1)
Quarter: 2019Q4

REPORT INFORMATION
  Report Type: Spontaneous
  Country: US (occurrence: US)
  Receive Date: 20190909
  Receipt Date: 20190909
  Transmission Date: 20200122
  Serious: No
  Sender: FDA-Public Use
  Company Number: None

PATIENT
  Age: 62 Year
  Sex: Male
  Weight: 104.33 kg

DRUGS (2)
  1. PREGABALIN 100 [Suspect]
     Active Substance: PREGABALIN
     Indication: POLYNEUROPATHY
     Route: 048
     Dates: start: 20190715
  2. PREGABALIN 100 [Suspect]
     Active Substance: PREGABALIN
     Indication: DIABETIC RETINOPATHY

REACTIONS (3)
  - Drug ineffective [None]
  - Neuralgia [None]
  - Product substitution issue [None]
